FAERS Safety Report 20517129 (Version 1)
Quarter: 2022Q1

REPORT INFORMATION
  Report Type: Report from Study
  Country: DE (occurrence: DE)
  Receive Date: 20220225
  Receipt Date: 20220225
  Transmission Date: 20220423
  Serious: Yes (Hospitalization, Other)
  Sender: FDA-Public Use
  Company Number: DE-ALS-000537

PATIENT
  Age: 86 Year
  Sex: Male

DRUGS (1)
  1. METFORMIN [Suspect]
     Active Substance: METFORMIN HYDROCHLORIDE
     Indication: Type 2 diabetes mellitus
     Route: 065

REACTIONS (7)
  - Circulatory collapse [Unknown]
  - Confusional state [Unknown]
  - Hyperglycaemia [Unknown]
  - Anaemia [Unknown]
  - Aortic valve stenosis [Unknown]
  - Lactic acidosis [Unknown]
  - Cardiac operation [Unknown]
